FAERS Safety Report 22216219 (Version 2)
Quarter: 2023Q2

REPORT INFORMATION
  Report Type: Spontaneous
  Country: US (occurrence: US)
  Receive Date: 20230417
  Receipt Date: 20230504
  Transmission Date: 20230721
  Serious: No
  Sender: FDA-Public Use
  Company Number: US-AMGEN-USASP2023059604

PATIENT
  Age: 77 Year
  Sex: Male

DRUGS (2)
  1. REPATHA [Suspect]
     Active Substance: EVOLOCUMAB
     Indication: Blood cholesterol abnormal
     Dosage: 140 MILLIGRAM, Q2WK
     Route: 058
     Dates: end: 20230402
  2. SPIRONOLACTONE [Concomitant]
     Active Substance: SPIRONOLACTONE
     Indication: Blood pressure abnormal
     Dosage: 25 MILLIGRAM

REACTIONS (4)
  - Blood glucose increased [Not Recovered/Not Resolved]
  - Hepatic steatosis [Unknown]
  - Cholelithiasis [Unknown]
  - Emotional disorder [Unknown]

NARRATIVE: CASE EVENT DATE: 20230301
